FAERS Safety Report 4848055-4 (Version None)
Quarter: 2005Q4

REPORT INFORMATION
  Report Type: 
  Country: None (occurrence: None)
  Receive Date: 20051208
  Receipt Date: 20051128
  Transmission Date: 20060501
  Serious: Yes (Death)
  Sender: FDA-Public Use
  Company Number: US-AMGEN-US159277

PATIENT
  Sex: Male

DRUGS (13)
  1. SENSIPAR [Suspect]
     Indication: HYPERPARATHYROIDISM SECONDARY
     Route: 048
     Dates: start: 20051001, end: 20051119
  2. ALLOPURINOL [Concomitant]
  3. PLAVIX [Concomitant]
  4. PHOSLO [Concomitant]
  5. HYDRALAZINE HYDROCHLORIDE [Concomitant]
  6. IMDUR [Concomitant]
  7. AMITRIPTYLINE HCL [Concomitant]
  8. COLCHICINE [Concomitant]
  9. METOPROLOL [Concomitant]
  10. PRILOSEC [Concomitant]
  11. HYDROXYZINE [Concomitant]
  12. LANOXIN [Concomitant]
  13. HYTRIN [Concomitant]

REACTIONS (3)
  - BLOOD CALCIUM ABNORMAL [None]
  - BLOOD PARATHYROID HORMONE INCREASED [None]
  - DEATH [None]
